FAERS Safety Report 7521867-4 (Version None)
Quarter: 2011Q2

REPORT INFORMATION
  Report Type: 
  Country: None (occurrence: None)
  Receive Date: 20110603
  Receipt Date: 20110520
  Transmission Date: 20111010
  Serious: Yes (Hospitalization)
  Sender: FDA-Public Use
  Company Number: CA-CELGENEUS-028-CCAZA-11050733

PATIENT
  Sex: Female
  Weight: 61 kg

DRUGS (21)
  1. SENOKOT [Concomitant]
     Route: 065
     Dates: start: 20110502
  2. LEVOTHYROXINE SODIUM [Concomitant]
     Dosage: 100 MICROGRAM
     Route: 048
     Dates: start: 20110506, end: 20110509
  3. COLACE [Concomitant]
     Route: 065
     Dates: start: 20110401
  4. LACTULOSE [Concomitant]
     Route: 065
     Dates: start: 20110502
  5. SYNTHROID [Concomitant]
     Route: 065
     Dates: start: 20080101
  6. METOCLOPRAMIDE [Concomitant]
     Route: 065
     Dates: start: 20110502
  7. AZACITIDINE [Suspect]
     Dosage: 75 MILLIGRAM/SQ. METER
     Route: 058
     Dates: start: 20110502
  8. LACTULOSE [Concomitant]
     Route: 065
     Dates: start: 20110506, end: 20110509
  9. SODIUM CHLORIDE [Concomitant]
     Dosage: 200ML/HR
     Route: 051
     Dates: start: 20110506, end: 20110506
  10. POLYSPORIN OINTMENT [Concomitant]
     Route: 061
     Dates: start: 20110507, end: 20110509
  11. METOCLOPRAMIDE [Concomitant]
     Route: 048
     Dates: start: 20110506, end: 20110509
  12. VITAMIN D [Concomitant]
     Route: 065
     Dates: start: 20090101
  13. ONDANSETRON [Concomitant]
     Route: 065
     Dates: start: 20110502
  14. SENOKOT [Concomitant]
     Route: 048
     Dates: start: 20110506, end: 20110509
  15. ATENOLOL AND CHLORTHALIDONE [Concomitant]
     Route: 065
     Dates: end: 20110414
  16. DOCUSATE SODIUM [Concomitant]
     Dosage: 200 MILLIGRAM
     Route: 048
     Dates: start: 20110506, end: 20110509
  17. GRANISETRON HCL [Concomitant]
     Dosage: 2 MILLIGRAM
     Route: 048
     Dates: start: 20110505, end: 20110509
  18. CODEINE SULFATE [Concomitant]
     Indication: PAIN
     Dosage: 15-30MG
     Route: 048
     Dates: start: 20110504, end: 20110509
  19. METOPROLOL TARTRATE [Concomitant]
     Dosage: 12.5 MILLIGRAM
     Route: 048
     Dates: start: 20110506, end: 20110509
  20. PHYTONADIONE [Concomitant]
     Dosage: 10 MILLIGRAM
     Route: 048
     Dates: start: 20110507, end: 20110507
  21. PHYTONADIONE [Concomitant]
     Dosage: 10 MILLIGRAM
     Route: 051
     Dates: start: 20110505, end: 20110506

REACTIONS (1)
  - PERICARDITIS [None]
